FAERS Safety Report 23987291 (Version 1)
Quarter: 2024Q2

REPORT INFORMATION
  Report Type: Spontaneous
  Country: PT (occurrence: PT)
  Receive Date: 20240618
  Receipt Date: 20240618
  Transmission Date: 20240716
  Serious: Yes (Other)
  Sender: FDA-Public Use
  Company Number: PT-GILEAD-2024-0677193

PATIENT
  Age: 60 Year
  Sex: Female

DRUGS (1)
  1. SACITUZUMAB GOVITECAN-HZIY [Suspect]
     Active Substance: SACITUZUMAB GOVITECAN-HZIY
     Indication: Triple negative breast cancer
     Dosage: UNK, DOSE REDUCTION TO 5.0 MG/KG
     Route: 065
     Dates: start: 2018

REACTIONS (7)
  - Knee arthroplasty [Unknown]
  - Neutropenia [Unknown]
  - Obesity [Unknown]
  - Gastrooesophageal reflux disease [Unknown]
  - Asthenia [Unknown]
  - Diarrhoea [Unknown]
  - Mucosal inflammation [Unknown]
